FAERS Safety Report 15577977 (Version 1)
Quarter: 2018Q4

REPORT INFORMATION
  Report Type: Spontaneous
  Country: FR (occurrence: FR)
  Receive Date: 20181102
  Receipt Date: 20181102
  Transmission Date: 20190205
  Serious: Yes (Hospitalization)
  Sender: FDA-Public Use
  Company Number: FR-SUN PHARMACEUTICAL INDUSTRIES LTD-2018RR-189495

PATIENT
  Age: 39 Year
  Sex: Male
  Weight: 76 kg

DRUGS (2)
  1. PARACETAMOL [Suspect]
     Active Substance: ACETAMINOPHEN
     Indication: TOOTH ABSCESS
     Dosage: 7 G, DAILY
     Route: 048
     Dates: start: 20180813, end: 20180816
  2. AMOXICILLINE [Concomitant]
     Active Substance: AMOXICILLIN
     Indication: TOOTH ABSCESS
     Dosage: 2 G, DAILY
     Route: 048
     Dates: start: 20180813

REACTIONS (3)
  - Hepatitis [Recovering/Resolving]
  - Poisoning deliberate [Recovering/Resolving]
  - Hepatitis cholestatic [Recovering/Resolving]

NARRATIVE: CASE EVENT DATE: 20180813
